FAERS Safety Report 7983482-8 (Version None)
Quarter: 2011Q4

REPORT INFORMATION
  Report Type: 
  Country: None (occurrence: None)
  Receive Date: 20111215
  Receipt Date: 20111121
  Transmission Date: 20120403
  Serious: Yes (Hospitalization)
  Sender: FDA-Public Use
  Company Number: US-OPTIMER-20110057

PATIENT
  Sex: Female
  Weight: 58.957 kg

DRUGS (1)
  1. DIFICID [Suspect]
     Indication: CLOSTRIDIAL INFECTION
     Dosage: UNK
     Dates: start: 20111001, end: 20110101

REACTIONS (3)
  - DISEASE RECURRENCE [None]
  - DIARRHOEA [None]
  - CLOSTRIDIAL INFECTION [None]
